FAERS Safety Report 10010847 (Version 2)
Quarter: 2014Q1

REPORT INFORMATION
  Report Type: Report from Study
  Country: US (occurrence: US)
  Receive Date: 20140314
  Receipt Date: 20140325
  Transmission Date: 20141002
  Serious: Yes (Other)
  Sender: FDA-Public Use
  Company Number: US-UCBSA-114613

PATIENT
  Age: 72 Year
  Sex: Male
  Weight: 70 kg

DRUGS (14)
  1. CIMZIA [Suspect]
     Indication: CROHN^S DISEASE
     Route: 058
     Dates: start: 20100304
  2. ASPIRIN [Concomitant]
     Indication: PROPHYLAXIS
     Route: 048
  3. HYDROCODONE + ACETAMINOPHEN [Concomitant]
     Indication: BACK PAIN
     Dosage: 10-325MG 1 TABLET PRN TID
     Route: 048
     Dates: start: 2010
  4. MAGNESIUM [Concomitant]
     Indication: MINERAL SUPPLEMENTATION
     Route: 048
     Dates: start: 2013
  5. OMEPRAZOLE [Concomitant]
     Indication: GASTROOESOPHAGEAL REFLUX DISEASE
     Route: 048
  6. ZINC [Concomitant]
     Indication: MINERAL SUPPLEMENTATION
     Route: 048
     Dates: start: 2013
  7. LOPERAMIDE [Concomitant]
     Indication: CROHN^S DISEASE
  8. ANDROGEL [Concomitant]
     Indication: HYPOGONADISM
     Dosage: EVERY AM
     Route: 062
     Dates: start: 2013
  9. CALCIUM CITRATE [Concomitant]
     Indication: OSTEOPOROSIS
     Route: 048
     Dates: start: 2005
  10. FERROUS SULPHATE [Concomitant]
     Indication: ANAEMIA
     Route: 048
     Dates: start: 2009
  11. INSULIN LISPRO [Concomitant]
     Indication: DIABETES MELLITUS
     Dosage: VIA INSULIN PUMP
     Route: 058
     Dates: start: 2005
  12. MULTIVITAMIN [Concomitant]
     Indication: VITAMIN SUPPLEMENTATION
     Dosage: 1 DAILY
     Route: 048
     Dates: start: 2005
  13. TRICOR [Concomitant]
     Indication: HYPERTRIGLYCERIDAEMIA
     Route: 048
     Dates: start: 2007
  14. VITAMIN-D [Concomitant]
     Indication: HYPOVITAMINOSIS
     Dosage: 50,000 UNITS
     Route: 048
     Dates: start: 20080308

REACTIONS (1)
  - Malignant melanoma [Recovered/Resolved]
